FAERS Safety Report 6294131-1 (Version None)
Quarter: 2009Q3

REPORT INFORMATION
  Report Type: 
  Country: None (occurrence: None)
  Receive Date: 20090803
  Receipt Date: 20081209
  Transmission Date: 20100115
  Serious: No
  Sender: FDA-Public Use
  Company Number: A0759798A

PATIENT
  Age: 37 Year
  Sex: Male

DRUGS (1)
  1. NICORETTE [Suspect]
     Dates: start: 20081201

REACTIONS (2)
  - PRODUCT QUALITY ISSUE [None]
  - TOOTHACHE [None]
